FAERS Safety Report 24111064 (Version 2)
Quarter: 2024Q3

REPORT INFORMATION
  Report Type: Spontaneous
  Country: JP (occurrence: JP)
  Receive Date: 20240718
  Receipt Date: 20240725
  Transmission Date: 20241017
  Serious: Yes (Death, Other)
  Sender: BAYER
  Company Number: JP-BAYER-2024A101766

PATIENT
  Age: 74 Year
  Sex: Male

DRUGS (1)
  1. NUBEQA [Suspect]
     Active Substance: DAROLUTAMIDE
     Indication: Hormone-dependent prostate cancer
     Dosage: UNK
     Dates: start: 20240109, end: 20240319

REACTIONS (6)
  - Hormone-dependent prostate cancer [Fatal]
  - Aqueductal stenosis [Fatal]
  - Metastases to bone [Fatal]
  - Metastases to central nervous system [Fatal]
  - Depressed level of consciousness [None]
  - Back pain [None]

NARRATIVE: CASE EVENT DATE: 20240216
